FAERS Safety Report 19447362 (Version 1)
Quarter: 2021Q2

REPORT INFORMATION
  Report Type: Spontaneous
  Country: US (occurrence: US)
  Receive Date: 20210621
  Receipt Date: 20210621
  Transmission Date: 20210717
  Serious: Yes (Hospitalization)
  Sender: FDA-Public Use
  Company Number: None

PATIENT
  Age: 55 Year
  Sex: Female

DRUGS (10)
  1. KISQALI [Suspect]
     Active Substance: RIBOCICLIB
     Indication: BREAST CANCER FEMALE
     Route: 048
     Dates: start: 20200913
  2. TRULICITY [Concomitant]
     Active Substance: DULAGLUTIDE
  3. TRAZODONE [Concomitant]
     Active Substance: TRAZODONE HYDROCHLORIDE
  4. LOSARTAN. [Concomitant]
     Active Substance: LOSARTAN
  5. CLINDAMYCIN. [Concomitant]
     Active Substance: CLINDAMYCIN
  6. BUPROPION. [Concomitant]
     Active Substance: BUPROPION
  7. ATORVASTATIN [Concomitant]
     Active Substance: ATORVASTATIN
  8. CLONAZEPAM. [Concomitant]
     Active Substance: CLONAZEPAM
  9. DULOXETINE. [Concomitant]
     Active Substance: DULOXETINE
  10. NORCO [Concomitant]
     Active Substance: ACETAMINOPHEN\HYDROCODONE BITARTRATE

REACTIONS (1)
  - Mastectomy [None]

NARRATIVE: CASE EVENT DATE: 20210619
